FAERS Safety Report 4536831-7 (Version None)
Quarter: 2004Q4

REPORT INFORMATION
  Report Type: 
  Country: None (occurrence: None)
  Receive Date: 20041220
  Receipt Date: 20041213
  Transmission Date: 20050328
  Serious: Yes (Hospitalization, Other)
  Sender: FDA-Public Use
  Company Number: 2004103889

PATIENT
  Age: 65 Year
  Sex: Male

DRUGS (3)
  1. SORTIS (ATORVASTATIN) [Suspect]
     Indication: HYPERLIPIDAEMIA
     Dosage: 20 MG (20 MG, DAILY), ORAL
     Route: 048
     Dates: start: 20000301
  2. CANDESARTAN CILEXETIL (CANDESARTAN CILEXETIL) [Concomitant]
  3. BISOPROLOL FUMARATE [Concomitant]

REACTIONS (2)
  - MUSCLE CONTRACTIONS INVOLUNTARY [None]
  - TOOTH DISORDER [None]
